FAERS Safety Report 25471629 (Version 1)
Quarter: 2025Q2

REPORT INFORMATION
  Report Type: Report from Study
  Country: BR (occurrence: BR)
  Receive Date: 20250624
  Receipt Date: 20250624
  Transmission Date: 20250716
  Serious: Yes (Other)
  Sender: UCB
  Company Number: BR-UCBSA-2025037067

PATIENT
  Sex: Male

DRUGS (1)
  1. LEVETIRACETAM [Suspect]
     Active Substance: LEVETIRACETAM
     Indication: Product used for unknown indication
     Dosage: 8 MILLILITER, 2X/DAY (BID)

REACTIONS (3)
  - Accident [Unknown]
  - Head injury [Unknown]
  - Insurance issue [Unknown]
